FAERS Safety Report 5241037-2 (Version None)
Quarter: 2007Q1

REPORT INFORMATION
  Report Type: 
  Country: None (occurrence: None)
  Receive Date: 20070220
  Receipt Date: 20070212
  Transmission Date: 20070707
  Serious: Yes (Hospitalization)
  Sender: FDA-Public Use
  Company Number: FR-MERCK-0701FRA00007

PATIENT
  Age: 66 Year
  Sex: Male

DRUGS (4)
  1. SINGULAIR [Suspect]
     Indication: ASTHMA
     Route: 048
     Dates: start: 20060523, end: 20061215
  2. FLUTICASONE PROPIONATE [Concomitant]
     Indication: ASTHMA
  3. [THERAPY UNSPECIFIED] [Concomitant]
     Indication: MUSCLE SPASMS
     Route: 048
  4. FENOFIBRATE [Concomitant]
     Indication: DYSLIPIDAEMIA
     Route: 048

REACTIONS (1)
  - LEUKOCYTOCLASTIC VASCULITIS [None]
